FAERS Safety Report 9447686 (Version 2)
Quarter: 2013Q3

REPORT INFORMATION
  Report Type: Spontaneous
  Country: US (occurrence: US)
  Receive Date: 20130808
  Receipt Date: 20130924
  Transmission Date: 20140515
  Serious: Yes (Other)
  Sender: FDA-Public Use
  Company Number: US-SANOFI-AVENTIS-2013SA079058

PATIENT
  Age: 61 Year
  Sex: Male
  Weight: 82.1 kg

DRUGS (7)
  1. LANTUS SOLOSTAR [Suspect]
     Indication: TYPE 2 DIABETES MELLITUS
     Dosage: DOSE:35 UNIT(S)
     Route: 058
     Dates: start: 2008
  2. LANTUS [Suspect]
     Route: 065
  3. NOVOLOG [Suspect]
     Indication: DIABETES MELLITUS
     Route: 065
  4. SOLOSTAR [Concomitant]
     Indication: TYPE 2 DIABETES MELLITUS
     Dates: start: 2008
  5. PROGRAF [Concomitant]
     Indication: LIVER DISORDER
  6. RANITIDINE [Concomitant]
     Indication: GASTRITIS
     Route: 065
  7. VERAPAMIL [Concomitant]
     Indication: HYPERTENSION
     Route: 065

REACTIONS (3)
  - Liver disorder [Unknown]
  - Neoplasm malignant [Unknown]
  - Blood glucose increased [Not Recovered/Not Resolved]
